FAERS Safety Report 8396143-0 (Version None)
Quarter: 2012Q2

REPORT INFORMATION
  Report Type: 
  Country: None (occurrence: None)
  Receive Date: 20120530
  Receipt Date: 20120522
  Transmission Date: 20120825
  Serious: Yes (Hospitalization, Congenital Anomaly)
  Sender: FDA-Public Use
  Company Number: US-GLAXOSMITHKLINE-A0979129A

PATIENT
  Sex: Female
  Weight: 3.4 kg

DRUGS (1)
  1. PAROXETINE HCL [Suspect]
     Indication: PRODUCT USED FOR UNKNOWN INDICATION
     Route: 064

REACTIONS (3)
  - PATENT DUCTUS ARTERIOSUS [None]
  - SUPRAVENTRICULAR TACHYCARDIA [None]
  - FOETAL EXPOSURE DURING PREGNANCY [None]
